FAERS Safety Report 17285958 (Version 2)
Quarter: 2020Q1

REPORT INFORMATION
  Report Type: Spontaneous
  Country: ES (occurrence: ES)
  Receive Date: 20200118
  Receipt Date: 20200224
  Transmission Date: 20200409
  Serious: Yes (Life-Threatening)
  Sender: FDA-Public Use
  Company Number: ES-SUN PHARMACEUTICAL INDUSTRIES LTD-2020RR-233558

PATIENT
  Age: 78 Year
  Sex: Female

DRUGS (3)
  1. LETROZOLE. [Suspect]
     Active Substance: LETROZOLE
     Indication: BREAST MASS
     Dosage: 2.5 MILLIGRAMS, QD
     Route: 048
     Dates: start: 20160803
  2. MASTICAL D UNIDIA 1000 MG/ 800 UI COMPRIMIDOS MASTICABLES, 30 COMPR... [Concomitant]
     Indication: FRACTURE
     Dosage: 1 DOSAGE FORM, DAILY
     Route: 048
     Dates: start: 20130809
  3. PARACETAMOL 1.000 MG 40 COMPRIMIDOS [Concomitant]
     Indication: BACK PAIN
     Dosage: 1000 MILLIGRAMS, 1DOSE/8HR
     Route: 048
     Dates: start: 20191126

REACTIONS (2)
  - Subclavian vein thrombosis [Recovering/Resolving]
  - Axillary vein thrombosis [Recovering/Resolving]

NARRATIVE: CASE EVENT DATE: 20191201
